FAERS Safety Report 5891469-4 (Version None)
Quarter: 2008Q3

REPORT INFORMATION
  Report Type: 
  Country: None (occurrence: None)
  Receive Date: 20080922
  Receipt Date: 20080910
  Transmission Date: 20090109
  Serious: Yes (Life-Threatening)
  Sender: FDA-Public Use
  Company Number: FR-WYE-H06019208

PATIENT
  Age: 82 Year
  Sex: Male

DRUGS (6)
  1. CORDARONE [Suspect]
     Dosage: UNSPECIFIED
     Dates: end: 20080320
  2. LEXOMIL [Concomitant]
     Dosage: UNSPECIFIED
     Route: 048
  3. DOXAZOSIN MESYLATE [Concomitant]
     Dosage: 8 MG
     Route: 048
  4. INIPOMP [Concomitant]
     Dosage: 20 MG
     Route: 048
  5. GALANTAMINE HYDROBROMIDE [Suspect]
     Indication: DEMENTIA
     Dosage: UNSPECIFIED
     Route: 048
     Dates: end: 20080320
  6. ALLOPURINOL [Concomitant]
     Dosage: 200 MG
     Route: 048

REACTIONS (2)
  - HYPOKALAEMIA [None]
  - PAROXYSMAL ARRHYTHMIA [None]
